FAERS Safety Report 7940988-5 (Version None)
Quarter: 2011Q4

REPORT INFORMATION
  Report Type: 
  Country: None (occurrence: None)
  Receive Date: 20111128
  Receipt Date: 20111118
  Transmission Date: 20120403
  Serious: Yes (Other)
  Sender: FDA-Public Use
  Company Number: FR-COVIDIEN/TYCO HEALTHCARE/MALLINCKRODT-T201102694

PATIENT
  Age: 32 Year
  Sex: Female

DRUGS (6)
  1. METHADOSE [Suspect]
     Dosage: 42 +/- 32 MG/DAY AT BEGINNING OF PREGNANCY
  2. BROMAZEPAM [Suspect]
     Dosage: UNK
  3. METHADOSE [Suspect]
     Indication: DRUG WITHDRAWAL MAINTENANCE THERAPY
     Dosage: 38 +/- 31 MG/DAY AT END OF PREGNANCY
  4. ALCOHOL [Suspect]
     Dosage: OCCASIONAL
  5. HALOPERIDOL [Suspect]
     Dosage: UNK
  6. COCAINE [Suspect]
     Dosage: OCCASIONAL

REACTIONS (2)
  - STILLBIRTH [None]
  - MATERNAL EXPOSURE DURING PREGNANCY [None]
